FAERS Safety Report 24462584 (Version 3)
Quarter: 2025Q2

REPORT INFORMATION
  Report Type: Spontaneous
  Country: FI (occurrence: FI)
  Receive Date: 20241018
  Receipt Date: 20250513
  Transmission Date: 20250716
  Serious: Yes (Hospitalization, Other)
  Sender: RANBAXY
  Company Number: FI-SUN PHARMACEUTICAL INDUSTRIES LTD-2024RR-473445

PATIENT
  Age: 71 Year
  Sex: Female

DRUGS (3)
  1. ATORVASTATIN CALCIUM [Suspect]
     Active Substance: ATORVASTATIN CALCIUM
     Indication: Product used for unknown indication
     Route: 065
     Dates: start: 2023
  2. ATORVASTATIN CALCIUM [Suspect]
     Active Substance: ATORVASTATIN CALCIUM
     Route: 065
  3. ATORVASTATIN CALCIUM [Suspect]
     Active Substance: ATORVASTATIN CALCIUM
     Route: 065
     Dates: start: 2024

REACTIONS (6)
  - Cerebrovascular accident [Unknown]
  - Vasculitis [Unknown]
  - Chemical peritonitis [Unknown]
  - Product use in unapproved indication [Unknown]
  - Wrong technique in product usage process [Unknown]
  - Intentional underdose [Unknown]

NARRATIVE: CASE EVENT DATE: 20230101
